FAERS Safety Report 9431865 (Version 2)
Quarter: 2013Q3

REPORT INFORMATION
  Report Type: Spontaneous
  Country: JP (occurrence: JP)
  Receive Date: 20130731
  Receipt Date: 20130827
  Transmission Date: 20140515
  Serious: Yes (Other)
  Sender: FDA-Public Use
  Company Number: PHHY2013JP059723

PATIENT
  Age: 78 Year
  Sex: Female
  Weight: 39 kg

DRUGS (12)
  1. EXELON PATCH [Suspect]
     Indication: DEMENTIA ALZHEIMER^S TYPE
     Dosage: 4.5 MG, DAILY
     Route: 062
     Dates: start: 201111
  2. EXELON PATCH [Suspect]
     Dosage: 9 MG, DAILY
     Route: 062
  3. EXELON PATCH [Suspect]
     Dosage: 13.5 MG, DAILY
     Route: 062
  4. EXELON PATCH [Suspect]
     Dosage: 18 MG, DAILY
     Route: 062
     Dates: end: 20120227
  5. DIOVAN [Concomitant]
     Dosage: 80 MG, UNK
     Route: 048
  6. PREDNISOLONE [Concomitant]
     Dosage: 2 MG, UNK
     Route: 048
  7. NAIXAN [Concomitant]
     Dosage: 200 MG, UNK
     Route: 048
  8. GASTER D [Concomitant]
     Dosage: 20 MG, UNK
     Route: 048
  9. NIVADIL [Concomitant]
     Dosage: 4 MG, UNK
     Route: 048
  10. ROCALTROL [Concomitant]
     Dosage: 0.25 UG, UNK
     Route: 048
  11. BENET [Concomitant]
     Dosage: 2.5 MG, UNK
     Route: 048
  12. VITAMEDIN                          /00274301/ [Concomitant]
     Dosage: 1 DF, UNK
     Route: 048

REACTIONS (2)
  - Blood cholinesterase decreased [Recovered/Resolved]
  - Decreased appetite [Recovered/Resolved]
